FAERS Safety Report 7027363-5 (Version None)
Quarter: 2010Q4

REPORT INFORMATION
  Report Type: 
  Country: None (occurrence: None)
  Receive Date: 20101004
  Receipt Date: 20100929
  Transmission Date: 20110411
  Serious: Yes (Life-Threatening, Hospitalization)
  Sender: FDA-Public Use
  Company Number: PHHO2006IL21831

PATIENT
  Sex: Female
  Weight: 19 kg

DRUGS (1)
  1. ICL670A ICL+DISTAB [Suspect]
     Indication: BLOOD IRON INCREASED
     Dosage: 625 MG, QD
     Route: 048
     Dates: start: 20060510, end: 20061226

REACTIONS (8)
  - COUGH [None]
  - FANCONI SYNDROME ACQUIRED [None]
  - GLYCOSURIA [None]
  - HYPOKALAEMIA [None]
  - HYPOPHOSPHATAEMIA [None]
  - METABOLIC ACIDOSIS [None]
  - RENAL DISORDER [None]
  - RENAL TUBULAR ACIDOSIS [None]
